FAERS Safety Report 10257492 (Version 1)
Quarter: 2014Q2

REPORT INFORMATION
  Report Type: Spontaneous
  Country: FI (occurrence: None)
  Receive Date: 20140620
  Receipt Date: 20140620
  Transmission Date: 20141212
  Serious: Yes (Death)
  Sender: FDA-Public Use
  Company Number: SYM-2014-22110

PATIENT
  Age: 70 Year
  Sex: Male

DRUGS (4)
  1. DIAZEPAM (DIAZEPAM) [Suspect]
     Indication: EPILEPSY
  2. OXAZEPAM (OXAZEPAM) [Suspect]
     Indication: PHYSICAL ASSAULT
  3. TEMAZEPAM (TEMAZEPAM) [Suspect]
     Indication: PHYSICAL ASSAULT
  4. TRIMETHOPRIM (TRIMETHOPRIM) [Suspect]
     Indication: PHYSICAL ASSAULT

REACTIONS (5)
  - Loss of consciousness [None]
  - Dyspnoea [None]
  - Unresponsive to stimuli [None]
  - Infection [None]
  - Poisoning [None]
